FAERS Safety Report 19428075 (Version 1)
Quarter: 2021Q2

REPORT INFORMATION
  Report Type: Spontaneous
  Country: FR (occurrence: FR)
  Receive Date: 20210616
  Receipt Date: 20210616
  Transmission Date: 20210717
  Serious: Yes (Death, Hospitalization, Other)
  Sender: FDA-Public Use
  Company Number: FR-AUROBINDO-AUR-APL-2021-024989

PATIENT
  Age: 72 Year
  Sex: Male

DRUGS (5)
  1. VITAMIN B12 [Concomitant]
     Active Substance: CYANOCOBALAMIN
     Indication: PRODUCT USED FOR UNKNOWN INDICATION
     Dosage: UNK
     Route: 065
  2. CARBOPLATIN. [Suspect]
     Active Substance: CARBOPLATIN
     Indication: SARCOMATOID MESOTHELIOMA
     Dosage: UNK
     Route: 065
     Dates: start: 20210519
  3. FOLIC ACID. [Concomitant]
     Active Substance: FOLIC ACID
     Indication: PRODUCT USED FOR UNKNOWN INDICATION
     Dosage: UNK
     Route: 065
  4. CORTISONE [Concomitant]
     Active Substance: CORTISONE
     Indication: PRODUCT USED FOR UNKNOWN INDICATION
     Dosage: UNK
     Route: 065
  5. ALIMTA [Suspect]
     Active Substance: PEMETREXED DISODIUM
     Indication: SARCOMATOID MESOTHELIOMA
     Dosage: 100 MILLIGRAM
     Route: 042
     Dates: start: 20210519, end: 20210519

REACTIONS (9)
  - Acute kidney injury [Fatal]
  - Fluid intake reduced [Fatal]
  - Nausea [Fatal]
  - Febrile bone marrow aplasia [Fatal]
  - Diarrhoea [Fatal]
  - Dyspepsia [Fatal]
  - Weight decreased [Fatal]
  - Gastrointestinal toxicity [Fatal]
  - Feeding disorder [Fatal]
